FAERS Safety Report 23393650 (Version 1)
Quarter: 2024Q1

REPORT INFORMATION
  Report Type: Spontaneous
  Country: CN (occurrence: CN)
  Receive Date: 20240111
  Receipt Date: 20240111
  Transmission Date: 20240410
  Serious: Yes (Other)
  Sender: FDA-Public Use
  Company Number: CN-PFIZER INC-PV202400002050

PATIENT
  Age: 71 Year
  Sex: Male
  Weight: 65 kg

DRUGS (1)
  1. VORICONAZOLE [Suspect]
     Active Substance: VORICONAZOLE
     Indication: Asthma
     Dosage: 0.2 G, 2X/DAY
     Route: 041
     Dates: start: 20231218, end: 20231227

REACTIONS (7)
  - Delirium [Recovering/Resolving]
  - Visual impairment [Recovering/Resolving]
  - Muscular weakness [Recovering/Resolving]
  - Skin lesion [Recovering/Resolving]
  - Oedema [Recovering/Resolving]
  - Hepatic function abnormal [Recovering/Resolving]
  - Off label use [Unknown]

NARRATIVE: CASE EVENT DATE: 20231230
